FAERS Safety Report 16625485 (Version 5)
Quarter: 2019Q4

REPORT INFORMATION
  Report Type: Report from Study
  Country: US (occurrence: US)
  Receive Date: 20190724
  Receipt Date: 20191004
  Transmission Date: 20200122
  Serious: Yes (Other)
  Sender: FDA-Public Use
  Company Number: US-B.I. PHARMACEUTICALS,INC./RIDGEFIELD-2019-BI-027087

PATIENT
  Sex: Female

DRUGS (1)
  1. OFEV [Suspect]
     Active Substance: NINTEDANIB
     Indication: IDIOPATHIC PULMONARY FIBROSIS
     Route: 048
     Dates: start: 20190521

REACTIONS (5)
  - Diarrhoea [Recovered/Resolved]
  - Gastric disorder [Unknown]
  - Gastrooesophageal reflux disease [Recovered/Resolved]
  - Sleep disorder [Recovered/Resolved]
  - Pain [Recovered/Resolved]
